FAERS Safety Report 4667632-7 (Version None)
Quarter: 2005Q2

REPORT INFORMATION
  Report Type: 
  Country: None (occurrence: None)
  Receive Date: 20050520
  Receipt Date: 20040518
  Transmission Date: 20051028
  Serious: Yes (Other)
  Sender: FDA-Public Use
  Company Number: PHNU2004DE01891

PATIENT
  Age: 53 Year
  Sex: Female

DRUGS (9)
  1. AREDIA [Suspect]
     Indication: METASTASES TO BONE
     Dosage: 90 MG EVERY 4 WEEKS 67 TIMES
     Route: 042
     Dates: start: 19971009
  2. AREDIA [Suspect]
     Dosage: 60 MG EVERY 4 WEEKS 8 TIMES
     Route: 042
     Dates: end: 20040420
  3. ANASTROZOLE [Concomitant]
     Route: 048
     Dates: start: 19991213, end: 20010124
  4. RADIOTHERAPY [Concomitant]
     Route: 065
  5. CYCLOPHOSPHAMIDE + 5-FU + METHOTREXATE [Concomitant]
     Route: 065
     Dates: start: 20010124, end: 20010124
  6. FLUOROURACIL [Concomitant]
     Dosage: 19 TIMES
     Route: 065
     Dates: start: 20020301, end: 20031218
  7. FLUOROURACIL [Concomitant]
     Dosage: 3 TIMES
     Route: 065
     Dates: start: 20040107, end: 20040729
  8. FOLINIC ACID [Concomitant]
     Route: 065
     Dates: start: 20020301, end: 20031218
  9. RED BLOOD CELLS [Concomitant]
     Dosage: 18 TIMES
     Route: 065
     Dates: start: 20020531, end: 20040811

REACTIONS (3)
  - METASTASIS [None]
  - OSTEOMYELITIS [None]
  - OSTEONECROSIS [None]
